FAERS Safety Report 6163882-1 (Version None)
Quarter: 2009Q2

REPORT INFORMATION
  Report Type: 
  Country: None (occurrence: None)
  Receive Date: 20090422
  Receipt Date: 20090420
  Transmission Date: 20091009
  Serious: Yes (Hospitalization)
  Sender: FDA-Public Use
  Company Number: FR-MERCK-0904FRA00059

PATIENT
  Age: 85 Year
  Sex: Female

DRUGS (13)
  1. COZAAR [Suspect]
     Indication: HYPERTENSION
     Route: 048
  2. FUROSEMIDE [Suspect]
     Indication: HYPERTENSION
     Route: 048
     Dates: start: 20090112, end: 20090114
  3. PANTOPRAZOLE SODIUM [Suspect]
     Indication: PROPHYLAXIS
     Route: 048
  4. AMIODARONE HYDROCHLORIDE [Suspect]
     Indication: TACHYCARDIA
     Route: 048
  5. WARFARIN SODIUM [Concomitant]
     Route: 048
  6. DESLORATADINE [Concomitant]
     Route: 048
  7. CALCIUM PHOSPHATE, TRIBASIC AND CHOLECALCIFEROL [Concomitant]
     Route: 048
  8. FOLIC ACID [Concomitant]
     Route: 048
  9. BUDESONIDE AND FORMOTEROL FUMARATE [Concomitant]
  10. POLYETHYLENE GLYCOL 4000 [Concomitant]
     Route: 065
  11. ENOXAPARIN SODIUM [Concomitant]
     Route: 065
     Dates: start: 20090112
  12. PREDNISOLONE SODIUM METASULFOBENZOATE [Concomitant]
     Route: 048
     Dates: start: 20081226
  13. ACETYLCYSTEINE [Concomitant]
     Route: 048
     Dates: start: 20081226

REACTIONS (2)
  - HYPONATRAEMIA [None]
  - INAPPROPRIATE ANTIDIURETIC HORMONE SECRETION [None]
